FAERS Safety Report 20189223 (Version 1)
Quarter: 2021Q4

REPORT INFORMATION
  Report Type: Report from Study
  Country: FR (occurrence: FR)
  Receive Date: 20211215
  Receipt Date: 20211215
  Transmission Date: 20220303
  Serious: Yes (Hospitalization, Other)
  Sender: FDA-Public Use
  Company Number: FR-TAKEDA-FR201706442

PATIENT
  Age: 60 Year
  Sex: Male
  Weight: 60 kg

DRUGS (7)
  1. TEDUGLUTIDE [Suspect]
     Active Substance: TEDUGLUTIDE
     Indication: Short-bowel syndrome
     Dosage: 0.05 MILLIGRAM/KILOGRAM
     Route: 058
  2. TEDUGLUTIDE [Suspect]
     Active Substance: TEDUGLUTIDE
     Indication: Short-bowel syndrome
     Dosage: 0.05 MILLIGRAM/KILOGRAM
     Route: 058
  3. TEDUGLUTIDE [Suspect]
     Active Substance: TEDUGLUTIDE
     Indication: Short-bowel syndrome
     Dosage: 0.05 MILLIGRAM/KILOGRAM
     Route: 058
  4. TEDUGLUTIDE [Suspect]
     Active Substance: TEDUGLUTIDE
     Indication: Short-bowel syndrome
     Dosage: 0.05 MILLIGRAM/KILOGRAM
     Route: 058
  5. SPASFON                            /00765801/ [Concomitant]
     Indication: Short-bowel syndrome
     Dosage: 80 MG, 3X/DAY:TID
     Route: 048
     Dates: start: 20170307
  6. DUPHALAC                           /00163401/ [Concomitant]
     Indication: Short-bowel syndrome
     Dosage: 1 DF, 1X/DAY:QD
     Route: 048
     Dates: start: 20170307
  7. TRAMADOL HYDROCHLORIDE [Concomitant]
     Active Substance: TRAMADOL HYDROCHLORIDE
     Indication: Neck pain
     Dosage: 50 MG, 3X/DAY:TID
     Route: 048
     Dates: start: 20170304

REACTIONS (7)
  - Cerebral venous thrombosis [Not Recovered/Not Resolved]
  - Jugular vein thrombosis [Not Recovered/Not Resolved]
  - Device related infection [Unknown]
  - Aplasia [Unknown]
  - Varices oesophageal [Unknown]
  - Testicular operation [Unknown]
  - Urinary tract infection [Unknown]

NARRATIVE: CASE EVENT DATE: 20170123
